FAERS Safety Report 6546190-6 (Version None)
Quarter: 2010Q1

REPORT INFORMATION
  Report Type: 
  Country: None (occurrence: None)
  Receive Date: 20100119
  Receipt Date: 20100104
  Transmission Date: 20100710
  Serious: Yes (Hospitalization)
  Sender: FDA-Public Use
  Company Number: 2009AC000321

PATIENT
  Age: 43 Year
  Sex: Female

DRUGS (10)
  1. DIGOXIN [Suspect]
     Indication: ATRIAL FIBRILLATION
     Dosage: 0.125 MG;QD;PO
     Route: 048
     Dates: start: 19960501
  2. VERAPAMIL [Concomitant]
  3. PLAVIX [Concomitant]
  4. ASPIRIN [Concomitant]
  5. ECOTRIN [Concomitant]
  6. BETAPACE [Concomitant]
  7. PLAVIX [Concomitant]
  8. COUMADIN [Concomitant]
  9. TOPAMAX [Concomitant]
  10. IMITREX [Concomitant]

REACTIONS (19)
  - ARTHRALGIA [None]
  - ATRIAL FLUTTER [None]
  - BLOOD GLUCOSE INCREASED [None]
  - COUGH [None]
  - DIZZINESS [None]
  - DYSPNOEA [None]
  - ECONOMIC PROBLEM [None]
  - HEADACHE [None]
  - HYPOTENSION [None]
  - INFLUENZA [None]
  - INJURY [None]
  - JOINT SWELLING [None]
  - NAUSEA [None]
  - PALPITATIONS [None]
  - PHONOPHOBIA [None]
  - PHOTOPHOBIA [None]
  - SINUS BRADYCARDIA [None]
  - SYNCOPE [None]
  - UPPER RESPIRATORY TRACT INFECTION [None]
